FAERS Safety Report 10471487 (Version 3)
Quarter: 2014Q4

REPORT INFORMATION
  Report Type: Spontaneous
  Country: NO (occurrence: NO)
  Receive Date: 20140923
  Receipt Date: 20141020
  Transmission Date: 20150528
  Serious: Yes (Other)
  Sender: FDA-Public Use
  Company Number: NO-PFIZER INC-2014259112

PATIENT
  Age: 55 Year
  Sex: Male

DRUGS (8)
  1. LYRICA [Suspect]
     Active Substance: PREGABALIN
     Dosage: 300 MG DAILY
     Route: 048
     Dates: start: 2014
  2. LIPITOR [Concomitant]
     Active Substance: ATORVASTATIN CALCIUM
  3. TRAMADOL [Concomitant]
     Active Substance: TRAMADOL
     Dosage: ALTERNATIVELY WITH PALEXIA DEPOT
  4. PALEXIA [Concomitant]
     Active Substance: TAPENTADOL HYDROCHLORIDE
  5. LYRICA [Suspect]
     Active Substance: PREGABALIN
     Dosage: 750 -825 MG DAILY
     Route: 048
     Dates: start: 2011, end: 2014
  6. ATORVASTATIN CALCIUM. [Concomitant]
     Active Substance: ATORVASTATIN CALCIUM
  7. LYRICA [Suspect]
     Active Substance: PREGABALIN
     Indication: NEURALGIA
     Dosage: 300 MG, DAILY
     Route: 048
     Dates: start: 20090919, end: 2011
  8. SOBRIL [Concomitant]
     Active Substance: OXAZEPAM
     Dosage: USED SELDOM

REACTIONS (3)
  - Product use issue [Unknown]
  - Neutropenia [Recovered/Resolved]
  - Pneumonia [Recovered/Resolved]

NARRATIVE: CASE EVENT DATE: 200909
